FAERS Safety Report 8225534-3 (Version None)
Quarter: 2012Q1

REPORT INFORMATION
  Report Type: 
  Country: None (occurrence: None)
  Receive Date: 20120321
  Receipt Date: 20120315
  Transmission Date: 20120608
  Serious: Yes (Other)
  Sender: FDA-Public Use
  Company Number: GR-ABBOTT-12P-066-0916309-00

PATIENT
  Age: 4 Year
  Sex: Male
  Weight: 15 kg

DRUGS (2)
  1. SEVOFLURANE [Suspect]
     Indication: GENERAL ANAESTHESIA
  2. PHENYLETHRINE [Suspect]
     Indication: MYDRIASIS

REACTIONS (6)
  - HYPERTENSION [None]
  - HEART RATE INCREASED [None]
  - PULMONARY OEDEMA [None]
  - MYDRIASIS [None]
  - TACHYPNOEA [None]
  - OXYGEN SATURATION DECREASED [None]
